FAERS Safety Report 7563941-2 (Version None)
Quarter: 2011Q2

REPORT INFORMATION
  Report Type: 
  Country: None (occurrence: None)
  Receive Date: 20110622
  Receipt Date: 20110620
  Transmission Date: 20111010
  Serious: Yes (Life-Threatening, Congenital Anomaly, Other)
  Sender: FDA-Public Use
  Company Number: ES-ASTRAZENECA-2011SE37293

PATIENT

DRUGS (1)
  1. LISINOPRIL [Suspect]
     Route: 064

REACTIONS (6)
  - FOETAL GROWTH RESTRICTION [None]
  - OLIGOHYDRAMNIOS [None]
  - PREMATURE BABY [None]
  - HYPOTENSION [None]
  - SKULL MALFORMATION [None]
  - RENAL FAILURE NEONATAL [None]
